FAERS Safety Report 18174647 (Version 1)
Quarter: 2020Q3

REPORT INFORMATION
  Report Type: Spontaneous
  Country: US (occurrence: US)
  Receive Date: 20200820
  Receipt Date: 20200820
  Transmission Date: 20201103
  Serious: No
  Sender: FDA-Public Use
  Company Number: US-PFIZER INC-2020321496

PATIENT
  Age: 63 Year
  Sex: Female
  Weight: 53.52 kg

DRUGS (1)
  1. PRISTIQ EXTENDED?RELEASE [Suspect]
     Active Substance: DESVENLAFAXINE SUCCINATE
     Indication: DEPRESSION
     Dosage: 50 MG, 1X/DAY (25MG; 2 IN THE MORNING)

REACTIONS (2)
  - Intentional product use issue [Unknown]
  - Eye disorder [Unknown]
